FAERS Safety Report 25654750 (Version 1)
Quarter: 2025Q3

REPORT INFORMATION
  Report Type: Spontaneous
  Country: EU (occurrence: EU)
  Receive Date: 20250807
  Receipt Date: 20250807
  Transmission Date: 20251021
  Serious: Yes (Hospitalization)
  Sender: RANBAXY
  Company Number: EU-AFSSAPS-CN2024000877

PATIENT
  Age: 93 Year
  Sex: Female
  Weight: 61 kg

DRUGS (10)
  1. NEBIVOLOL [Suspect]
     Active Substance: NEBIVOLOL
     Indication: Cardiac failure
     Dosage: 2.5 MILLIGRAM, DAILY
     Route: 048
     Dates: start: 2013
  2. CANDESARTAN [Suspect]
     Active Substance: CANDESARTAN
     Indication: Cardiac failure
     Dosage: 4 MILLIGRAM, DAILY
     Route: 048
     Dates: start: 2013
  3. SERTRALINE [Suspect]
     Active Substance: SERTRALINE HYDROCHLORIDE
     Indication: Gastrooesophageal reflux disease
     Dosage: 50 MILLIGRAM, DAILY
     Route: 048
     Dates: start: 202105
  4. LERCANIDIPINE [Suspect]
     Active Substance: LERCANIDIPINE
     Indication: Cardiac failure
     Dosage: 10 MILLIGRAM, DAILY
     Route: 048
     Dates: start: 2013
  5. FUROSEMIDE [Suspect]
     Active Substance: FUROSEMIDE
     Indication: Cardiac failure
     Dosage: 80 MILLIGRAM, DAILY
     Route: 048
     Dates: start: 20240611
  6. POTASSIUM CHLORIDE [Concomitant]
     Active Substance: POTASSIUM CHLORIDE
     Indication: Hypokalaemia
     Dosage: 2 DOSAGE FORM, DAILY
     Route: 048
     Dates: start: 20240611
  7. ATORVASTATIN [Concomitant]
     Active Substance: ATORVASTATIN
     Indication: Product used for unknown indication
     Dosage: 10 MILLIGRAM, DAILY
     Route: 048
     Dates: start: 2013
  8. LANSOPRAZOLE [Concomitant]
     Active Substance: LANSOPRAZOLE
     Indication: Gastrooesophageal reflux disease
     Dosage: 10 MILLIGRAM, DAILY
     Route: 048
     Dates: start: 2013
  9. CHOLECALCIFEROL [Concomitant]
     Active Substance: CHOLECALCIFEROL
     Indication: Vitamin D deficiency
     Dosage: 50000 INTERNATIONAL UNIT, MONTHLY
     Route: 048
  10. ELIQUIS [Concomitant]
     Active Substance: APIXABAN
     Indication: Atrial fibrillation
     Dosage: 5 MILLIGRAM, DAILY
     Route: 048
     Dates: start: 2021

REACTIONS (1)
  - Fall [Recovered/Resolved with Sequelae]

NARRATIVE: CASE EVENT DATE: 20240807
